FAERS Safety Report 7429077-6 (Version None)
Quarter: 2011Q2

REPORT INFORMATION
  Report Type: 
  Country: None (occurrence: None)
  Receive Date: 20110421
  Receipt Date: 20110415
  Transmission Date: 20111010
  Serious: Yes (Other)
  Sender: FDA-Public Use
  Company Number: NG-ROCHE-771794

PATIENT
  Sex: Female

DRUGS (3)
  1. XELODA [Suspect]
     Route: 065
  2. DOCETAXEL [Concomitant]
  3. AROMASIN [Concomitant]

REACTIONS (1)
  - MENTAL DISORDER [None]
